FAERS Safety Report 8072974-1 (Version None)
Quarter: 2012Q1

REPORT INFORMATION
  Report Type: 
  Country: None (occurrence: None)
  Receive Date: 20120126
  Receipt Date: 20110316
  Transmission Date: 20120608
  Serious: Yes (Other)
  Sender: FDA-Public Use
  Company Number: US-BAYER-200936218NA

PATIENT
  Age: 49 Year
  Sex: Female
  Weight: 85.455 kg

DRUGS (13)
  1. OMNISCAN [Suspect]
     Indication: JOINT DEPOSIT
     Dates: start: 20061213, end: 20061213
  2. ANTIPSORIATICS [Concomitant]
  3. METHOTREXATE [Concomitant]
  4. MAGNEVIST [Suspect]
     Indication: NUCLEAR MAGNETIC RESONANCE IMAGING
  5. PROCRIT [Concomitant]
  6. MULTIHANCE [Suspect]
     Indication: NUCLEAR MAGNETIC RESONANCE IMAGING
  7. IRON [Concomitant]
  8. EPOGEN [Concomitant]
  9. OXSORALEN-ULTRA [Concomitant]
  10. OMNISCAN [Suspect]
     Indication: SYNOVITIS
  11. OMNISCAN [Suspect]
     Indication: NUCLEAR MAGNETIC RESONANCE IMAGING
  12. OMNIPAQUE 140 [Concomitant]
  13. OPTIMARK [Suspect]
     Indication: NUCLEAR MAGNETIC RESONANCE IMAGING

REACTIONS (15)
  - OEDEMA PERIPHERAL [None]
  - FIBROSIS [None]
  - OEDEMA [None]
  - SKIN EXFOLIATION [None]
  - GENERAL PHYSICAL HEALTH DETERIORATION [None]
  - SKIN FIBROSIS [None]
  - SCAR [None]
  - DEFORMITY [None]
  - RASH MACULAR [None]
  - SKIN INDURATION [None]
  - NEPHROGENIC SYSTEMIC FIBROSIS [None]
  - PAIN [None]
  - PAIN OF SKIN [None]
  - JOINT STIFFNESS [None]
  - ERYTHEMA [None]
